FAERS Safety Report 13717018 (Version 1)
Quarter: 2017Q3

REPORT INFORMATION
  Report Type: Spontaneous
  Country: FR (occurrence: FR)
  Receive Date: 20170705
  Receipt Date: 20170705
  Transmission Date: 20171127
  Serious: Yes (Other)
  Sender: FDA-Public Use
  Company Number: FR-EMD SERONO-8166265

PATIENT
  Age: 29 Year
  Sex: Female
  Weight: 50 kg

DRUGS (4)
  1. PROGESTAN [Suspect]
     Active Substance: PROGESTERONE
     Indication: ASSISTED FERTILISATION
  2. GONAL-F [Suspect]
     Active Substance: FOLLITROPIN
     Indication: ASSISTED FERTILISATION
  3. LUVERIS [Suspect]
     Active Substance: LUTROPIN ALFA
     Indication: ASSISTED FERTILISATION
  4. SYNAREL [Suspect]
     Active Substance: NAFARELIN ACETATE
     Indication: ASSISTED FERTILISATION

REACTIONS (10)
  - Fatigue [Unknown]
  - Abortion spontaneous [Recovered/Resolved]
  - Back pain [Unknown]
  - Breast pain [Unknown]
  - Gastroenteritis [Unknown]
  - Weight decreased [Unknown]
  - Nausea [Unknown]
  - Stress at work [Unknown]
  - Influenza [Unknown]
  - Mood altered [Unknown]
